FAERS Safety Report 16687050 (Version 1)
Quarter: 2019Q3

REPORT INFORMATION
  Report Type: Spontaneous
  Country: CN (occurrence: CN)
  Receive Date: 20190809
  Receipt Date: 20190809
  Transmission Date: 20191004
  Serious: Yes (Other)
  Sender: FDA-Public Use
  Company Number: CN-NOVOPROD-676692

PATIENT
  Age: 62 Year
  Sex: Male
  Weight: 44 kg

DRUGS (2)
  1. GLUCOSE INJECTION [Concomitant]
     Active Substance: DEXTROSE
     Indication: MEDICATION DILUTION
     Dosage: 500 ML, QD (150 ML/H +5%)
     Route: 058
     Dates: start: 20190725, end: 20190725
  2. NOVORAPID [Suspect]
     Active Substance: INSULIN ASPART
     Indication: TYPE 2 DIABETES MELLITUS
     Dosage: 8 IU, QD
     Route: 058
     Dates: start: 20190725, end: 20190725

REACTIONS (1)
  - Cold sweat [Recovered/Resolved]

NARRATIVE: CASE EVENT DATE: 20190725
